FAERS Safety Report 10617141 (Version 1)
Quarter: 2014Q4

REPORT INFORMATION
  Report Type: Spontaneous
  Country: FR (occurrence: FR)
  Receive Date: 20141201
  Receipt Date: 20141201
  Transmission Date: 20150529
  Serious: Yes (Life-Threatening, Hospitalization)
  Sender: FDA-Public Use
  Company Number: FR-SA-2014SA160360

PATIENT
  Age: 78 Year
  Sex: Male

DRUGS (2)
  1. PREVISCAN [Suspect]
     Active Substance: FLUINDIONE
     Dosage: STRENGTH:5 MG
     Route: 048
     Dates: start: 201408, end: 20141014
  2. PLAVIX [Suspect]
     Active Substance: CLOPIDOGREL BISULFATE
     Dosage: STRENGTH:75 MG
     Route: 048
     Dates: end: 20141014

REACTIONS (3)
  - Anaemia [Recovering/Resolving]
  - Cardiac tamponade [Recovered/Resolved]
  - International normalised ratio increased [Recovered/Resolved]

NARRATIVE: CASE EVENT DATE: 20141014
